FAERS Safety Report 11686638 (Version 3)
Quarter: 2016Q4

REPORT INFORMATION
  Report Type: Spontaneous
  Country: US (occurrence: US)
  Receive Date: 20151030
  Receipt Date: 20161011
  Transmission Date: 20170206
  Serious: Yes (Hospitalization)
  Sender: FDA-Public Use
  Company Number: US-PFIZER INC-2015348827

PATIENT
  Age: 64 Year
  Sex: Male

DRUGS (2)
  1. RAPAMUNE [Suspect]
     Active Substance: SIROLIMUS
     Indication: HEART TRANSPLANT
     Dosage: 1 MG, UNK
     Dates: start: 2007
  2. RAPAMUNE [Suspect]
     Active Substance: SIROLIMUS
     Dosage: 0.5 MG, DAILY
     Route: 048
     Dates: start: 20160930

REACTIONS (3)
  - Chronic kidney disease [Not Recovered/Not Resolved]
  - Hypoacusis [Unknown]
  - Product use issue [Unknown]
